FAERS Safety Report 24148990 (Version 1)
Quarter: 2024Q3

REPORT INFORMATION
  Report Type: Spontaneous
  Country: ES (occurrence: ES)
  Receive Date: 20240729
  Receipt Date: 20240729
  Transmission Date: 20241016
  Serious: Yes (Other)
  Sender: ANI
  Company Number: ES-ANIPHARMA-2024-ES-000079

PATIENT
  Age: 39 Year
  Sex: Male

DRUGS (7)
  1. ATACAND [Suspect]
     Active Substance: CANDESARTAN CILEXETIL
     Indication: Hypertension
     Dosage: 8 MG DAILY
     Route: 048
     Dates: start: 20240605, end: 20240709
  2. LORAZEPAM [Concomitant]
     Active Substance: LORAZEPAM
     Dosage: 2 MG DAILY
     Dates: start: 20230908
  3. FLATORIL [Concomitant]
     Dosage: 1 DF Q8H
     Dates: start: 20220912
  4. CITALOPRAM NORMON [Concomitant]
     Dates: start: 20240320
  5. ZALDIAR [Concomitant]
     Active Substance: ACETAMINOPHEN\TRAMADOL HYDROCHLORIDE
     Dosage: 1 DF Q8H
     Dates: start: 20220912
  6. PANTOPRAZOLE SODIUM [Concomitant]
     Active Substance: PANTOPRAZOLE SODIUM
     Dates: start: 20220912
  7. ZOLPIDEM TARTRATE [Concomitant]
     Active Substance: ZOLPIDEM TARTRATE
     Dates: start: 20220912

REACTIONS (1)
  - Erectile dysfunction [Unknown]

NARRATIVE: CASE EVENT DATE: 20240606
